FAERS Safety Report 13750638 (Version 1)
Quarter: 2017Q3

REPORT INFORMATION
  Report Type: Spontaneous
  Country: US (occurrence: US)
  Receive Date: 20170713
  Receipt Date: 20170713
  Transmission Date: 20171127
  Serious: No
  Sender: FDA-Public Use
  Company Number: US-ASTELLAS-2017US001612

PATIENT
  Age: 95 Year
  Sex: Female

DRUGS (2)
  1. MYRBETRIQ [Suspect]
     Active Substance: MIRABEGRON
     Dosage: 50MG CUT INTO HALF TABLET, ONCE DAILY
     Route: 065
     Dates: start: 20170110
  2. MYRBETRIQ [Suspect]
     Active Substance: MIRABEGRON
     Indication: PRODUCT USED FOR UNKNOWN INDICATION
     Route: 065
     Dates: start: 201612

REACTIONS (7)
  - Pain in extremity [Unknown]
  - Pain [Unknown]
  - Sciatica [Unknown]
  - Loss of consciousness [Unknown]
  - Dizziness [Unknown]
  - Wrong technique in product usage process [Unknown]
  - Feeling abnormal [Unknown]
